FAERS Safety Report 6935147-9 (Version None)
Quarter: 2010Q3

REPORT INFORMATION
  Report Type: 
  Country: None (occurrence: None)
  Receive Date: 20100822
  Receipt Date: 20100816
  Transmission Date: 20110219
  Serious: Yes (Death)
  Sender: FDA-Public Use
  Company Number: PHHY2010CA54115

PATIENT
  Sex: Female

DRUGS (1)
  1. SANDOSTATIN LAR [Suspect]
     Indication: METASTASES TO PERITONEUM
     Dosage: 20 MG, QMO
     Route: 030
     Dates: start: 20100625, end: 20100721

REACTIONS (1)
  - DEATH [None]
